FAERS Safety Report 9774166 (Version 1)
Quarter: 2013Q4

REPORT INFORMATION
  Report Type: Spontaneous
  Country: US (occurrence: US)
  Receive Date: 20131220
  Receipt Date: 20131220
  Transmission Date: 20140711
  Serious: Yes (Other)
  Sender: FDA-Public Use
  Company Number: US-BEH-2013039649

PATIENT
  Age: 51 Year
  Sex: Male
  Weight: 45 kg

DRUGS (13)
  1. ZEMAIRA [Suspect]
     Indication: ALPHA-1 ANTI-TRYPSIN DEFICIENCY
     Route: 042
  2. HYDROCHLOROTHIAZIDE [Concomitant]
  3. LEVOTHYROXINE [Concomitant]
  4. DIPHENHYDRAMINE [Concomitant]
  5. SODIUM CHLORIDE [Concomitant]
  6. EPIPEN [Concomitant]
  7. LMX [Concomitant]
  8. ALBUTEROL [Concomitant]
  9. SIMVASTATIN [Concomitant]
  10. ASPIRIN [Concomitant]
  11. SYMBICORT [Concomitant]
  12. SPIRIVA [Concomitant]
  13. DAILY MULTIVITAMIN [Concomitant]

REACTIONS (3)
  - Hypertension [Unknown]
  - Headache [Unknown]
  - Dizziness [Unknown]
